FAERS Safety Report 19258930 (Version 1)
Quarter: 2021Q2

REPORT INFORMATION
  Report Type: Spontaneous
  Country: JP (occurrence: JP)
  Receive Date: 20210514
  Receipt Date: 20210514
  Transmission Date: 20210717
  Serious: Yes (Hospitalization)
  Sender: FDA-Public Use
  Company Number: JP-ASTRAZENECA-2021A408527

PATIENT
  Age: 74 Year
  Sex: Female
  Weight: 34 kg

DRUGS (4)
  1. THYRADIN?S [Concomitant]
     Active Substance: LEVOTHYROXINE
     Dosage: AFTER BREAKFAST
     Route: 048
  2. NEXIUM [Suspect]
     Active Substance: ESOMEPRAZOLE MAGNESIUM
     Indication: GASTRITIS
     Route: 048
     Dates: start: 20200801, end: 20200807
  3. RISPERIDONE OD [Concomitant]
     Dosage: AFTER BREAKFAST
     Route: 048
  4. FEBURIC [Concomitant]
     Active Substance: FEBUXOSTAT
     Dosage: AFTER BREAKFAST
     Route: 048

REACTIONS (1)
  - Blood disorder [Recovering/Resolving]

NARRATIVE: CASE EVENT DATE: 20200807
